FAERS Safety Report 24995019 (Version 1)
Quarter: 2025Q1

REPORT INFORMATION
  Report Type: Other
  Country: HU (occurrence: HU)
  Receive Date: 20250221
  Receipt Date: 20250221
  Transmission Date: 20250408
  Serious: Yes (Hospitalization)
  Sender: EMD SERONO INC
  Company Number: HU-Merck Healthcare KGaA-2025007910

PATIENT
  Age: 80 Year
  Sex: Male

DRUGS (2)
  1. METFORMIN [Suspect]
     Active Substance: METFORMIN HYDROCHLORIDE
     Indication: Type 2 diabetes mellitus
  2. APIXABAN [Concomitant]
     Active Substance: APIXABAN
     Indication: Pulmonary embolism

REACTIONS (2)
  - Hypomagnesaemia [Recovered/Resolved]
  - Contraindicated product administered [Unknown]
